FAERS Safety Report 8922395 (Version 1)
Quarter: 2012Q4

REPORT INFORMATION
  Report Type: 
  Country: US (occurrence: US)
  Receive Date: 20121126
  Receipt Date: 20121126
  Transmission Date: 20130627
  Serious: Yes (Other)
  Sender: FDA-Public Use
  Company Number: US-JNJFOC-20121109359

PATIENT
  Age: 33 Year
  Sex: Female

DRUGS (3)
  1. REMICADE [Suspect]
     Indication: COLITIS ULCERATIVE
     Route: 042
  2. REMICADE [Suspect]
     Indication: COLITIS ULCERATIVE
     Dosage: 5th dose
     Route: 042
  3. DIPHENHYDRAMINE [Concomitant]
     Indication: PREMEDICATION
     Route: 042

REACTIONS (5)
  - Dyspnoea [Unknown]
  - Infusion related reaction [Unknown]
  - Vomiting [Unknown]
  - Back pain [Unknown]
  - Erythema [Unknown]
